FAERS Safety Report 19658972 (Version 3)
Quarter: 2021Q3

REPORT INFORMATION
  Report Type: Spontaneous
  Country: US (occurrence: US)
  Receive Date: 20210805
  Receipt Date: 20210820
  Transmission Date: 20211014
  Serious: No
  Sender: FDA-Public Use
  Company Number: US-SA-2021SA254632

PATIENT
  Age: 67 Year
  Sex: Female

DRUGS (1)
  1. TOUJEO [Suspect]
     Active Substance: INSULIN GLARGINE
     Indication: TYPE 2 DIABETES MELLITUS
     Dosage: 87 IU, QD
     Route: 065
     Dates: start: 202105

REACTIONS (3)
  - Injection site pain [Unknown]
  - Gait inability [Unknown]
  - Device issue [Unknown]

NARRATIVE: CASE EVENT DATE: 2021
